FAERS Safety Report 4894852-9 (Version None)
Quarter: 2006Q1

REPORT INFORMATION
  Report Type: 
  Country: None (occurrence: None)
  Receive Date: 20060124
  Receipt Date: 20060109
  Transmission Date: 20060701
  Serious: Yes (Hospitalization)
  Sender: FDA-Public Use
  Company Number: 220944

PATIENT
  Age: 45 Year
  Sex: Female
  Weight: 67 kg

DRUGS (3)
  1. HERCEPTIN [Suspect]
     Indication: BREAST CANCER
     Dosage: 134 MG, INTRAVENOUS
     Route: 042
     Dates: start: 20051101, end: 20051220
  2. LONAFARNIB (LONAFARNIB) [Suspect]
     Indication: BREAST CANCER
     Dosage: 150 MG, ORAL
     Route: 048
     Dates: start: 20050722, end: 20051219
  3. PACLITAXEL [Suspect]
     Indication: BREAST CANCER
     Dosage: 325 MG, INTRAVENOUS
     Route: 042
     Dates: start: 20051101, end: 20051213

REACTIONS (1)
  - FEBRILE NEUTROPENIA [None]
